FAERS Safety Report 9774539 (Version 1)
Quarter: 2013Q4

REPORT INFORMATION
  Report Type: Spontaneous
  Country: US (occurrence: US)
  Receive Date: 20131220
  Receipt Date: 20131220
  Transmission Date: 20140711
  Serious: Yes (Hospitalization, Other)
  Sender: FDA-Public Use
  Company Number: US-BAYER-2013-153385

PATIENT
  Age: 43 Year
  Sex: Female
  Weight: 57.14 kg

DRUGS (3)
  1. YAZ [Suspect]
     Route: 048
  2. IBUPROFEN [Concomitant]
  3. FLEXERIL [Concomitant]

REACTIONS (3)
  - Deep vein thrombosis [None]
  - Thrombophlebitis superficial [None]
  - Pulmonary embolism [None]
